FAERS Safety Report 5788311-9 (Version None)
Quarter: 2008Q2

REPORT INFORMATION
  Report Type: 
  Country: None (occurrence: None)
  Receive Date: 20080625
  Receipt Date: 20080613
  Transmission Date: 20081010
  Serious: Yes (Death, Hospitalization)
  Sender: FDA-Public Use
  Company Number: JP-PFIZER INC-2008029326

PATIENT
  Sex: Male
  Weight: 54 kg

DRUGS (2)
  1. CAMPTO [Suspect]
     Indication: RECTAL CANCER
     Dosage: DAILY DOSE:90MG
     Route: 042
     Dates: start: 20050917, end: 20051001
  2. BRIPLATIN [Suspect]
     Indication: RECTAL CANCER
     Dosage: DAILY DOSE:90MG
     Route: 042
     Dates: start: 20050917, end: 20050917

REACTIONS (7)
  - GASTROINTESTINAL HAEMORRHAGE [None]
  - HAEMOGLOBIN DECREASED [None]
  - HEPATIC ENCEPHALOPATHY [None]
  - HEPATITIS B [None]
  - HEPATITIS FULMINANT [None]
  - LEUKOPENIA [None]
  - NEUTROPENIA [None]
